FAERS Safety Report 11215970 (Version 3)
Quarter: 2015Q4

REPORT INFORMATION
  Report Type: Not Available
  Country: IT (occurrence: IT)
  Receive Date: 20150624
  Receipt Date: 20151001
  Transmission Date: 20160304
  Serious: Yes (Hospitalization)
  Sender: FDA-Public Use
  Company Number: IT-MUNDIPHARMA DS AND PHARMACOVIGILANCE-GBR-2015-0028989

PATIENT
  Age: 26 Year
  Sex: Female

DRUGS (3)
  1. OXYCODONE HCL PR TABLET [Suspect]
     Active Substance: OXYCODONE HYDROCHLORIDE
     Indication: SPINAL PAIN
     Dosage: 11 POSOLOGIC UNITS/TOTAL
     Route: 048
     Dates: start: 20150601, end: 20150601
  2. TRAMADOL HCL [Suspect]
     Active Substance: TRAMADOL HYDROCHLORIDE
     Indication: SPINAL PAIN
     Dosage: 2 POSOLOGIC UNITS/TOTAL
     Route: 048
     Dates: start: 20150601, end: 20150601
  3. FENTANYL. [Suspect]
     Active Substance: FENTANYL
     Indication: PRODUCT USED FOR UNKNOWN INDICATION
     Dosage: 1 POSOLOGIC UNIT/TOTAL
     Route: 048
     Dates: start: 20150601, end: 20150601

REACTIONS (4)
  - Suicide attempt [Recovered/Resolved]
  - Drug abuse [Recovered/Resolved]
  - Vomiting [Recovered/Resolved]
  - Headache [Recovered/Resolved]

NARRATIVE: CASE EVENT DATE: 20150601
